FAERS Safety Report 20219458 (Version 1)
Quarter: 2021Q4

REPORT INFORMATION
  Report Type: Spontaneous
  Country: US (occurrence: None)
  Receive Date: 20211222
  Receipt Date: 20211222
  Transmission Date: 20220303
  Serious: Yes (Other)
  Sender: FDA-Public Use
  Company Number: None

PATIENT
  Age: 39 Year
  Sex: Female
  Weight: 70.9 kg

DRUGS (14)
  1. OCTREOTIDE [Suspect]
     Active Substance: OCTREOTIDE
     Indication: Gastric disorder
     Dosage: FREQUENCY : 3 TIMES A DAY;?
     Route: 058
     Dates: start: 20211220, end: 20211221
  2. TYLENOL [Concomitant]
     Active Substance: ACETAMINOPHEN
     Dates: start: 20211207
  3. CALCIUM CARBONATE [Concomitant]
     Active Substance: CALCIUM CARBONATE
     Dates: start: 20211219
  4. LOVENOX [Concomitant]
     Active Substance: ENOXAPARIN SODIUM
     Dates: start: 20211217
  5. ESCITALOPRAM [Concomitant]
     Active Substance: ESCITALOPRAM OXALATE
     Dates: start: 20211207
  6. FAMOTIDINE [Concomitant]
     Active Substance: FAMOTIDINE
     Dates: start: 20211219
  7. CLINOLIPID [Concomitant]
     Active Substance: OLIVE OIL\SOYBEAN OIL
     Dates: start: 20211207
  8. Adult parenteral nutrition [Concomitant]
     Dates: start: 20211207
  9. Hydromorphone oral [Concomitant]
     Dates: start: 20211206
  10. LIDODERM [Concomitant]
     Active Substance: LIDOCAINE
     Dates: start: 20211214
  11. Menthol in Vanicream [Concomitant]
     Dates: start: 20211220
  12. OLANZAPINE [Concomitant]
     Active Substance: OLANZAPINE
     Dates: start: 20211207
  13. PANTOPRAZOLE [Concomitant]
     Active Substance: PANTOPRAZOLE
     Dates: start: 20211207
  14. ZOSYN [Concomitant]
     Active Substance: PIPERACILLIN SODIUM\TAZOBACTAM SODIUM
     Dates: start: 20211214

REACTIONS (3)
  - Anxiety [None]
  - Intentional self-injury [None]
  - Urinary incontinence [None]

NARRATIVE: CASE EVENT DATE: 20211221
